FAERS Safety Report 4295046-0 (Version None)
Quarter: 2004Q1

REPORT INFORMATION
  Report Type: 
  Country: None (occurrence: None)
  Receive Date: 20040213
  Receipt Date: 20040206
  Transmission Date: 20041129
  Serious: Yes (Hospitalization, Other)
  Sender: FDA-Public Use
  Company Number: 2004S1000374

PATIENT
  Age: 82 Year
  Sex: Female
  Weight: 78.4723 kg

DRUGS (2)
  1. NADOLOL [Suspect]
     Indication: HYPERTENSION
     Dosage: 20MG BID, ORAL
     Route: 048
     Dates: start: 20040131, end: 20040202
  2. LEVOTHYROXINE SODIUM [Concomitant]

REACTIONS (2)
  - DIZZINESS [None]
  - VERTIGO [None]
